FAERS Safety Report 7710942-7 (Version None)
Quarter: 2011Q3

REPORT INFORMATION
  Report Type: 
  Country: None (occurrence: None)
  Receive Date: 20110825
  Receipt Date: 20110818
  Transmission Date: 20111222
  Serious: Yes (Other)
  Sender: FDA-Public Use
  Company Number: DE-MERCK-1108DEU00081

PATIENT
  Age: 44 Year
  Sex: Female

DRUGS (1)
  1. APREPITANT [Suspect]
     Indication: PROPHYLAXIS OF NAUSEA AND VOMITING
     Route: 042
     Dates: start: 20110810, end: 20110810

REACTIONS (5)
  - CYANOSIS [None]
  - PARAESTHESIA ORAL [None]
  - CIRCULATORY COLLAPSE [None]
  - CARDIOVASCULAR DISORDER [None]
  - DYSPNOEA [None]
